FAERS Safety Report 10670937 (Version 1)
Quarter: 2014Q4

REPORT INFORMATION
  Report Type: Spontaneous
  Country: US (occurrence: None)
  Receive Date: 20141219
  Receipt Date: 20141219
  Transmission Date: 20150529
  Serious: Yes (Other)
  Sender: FDA-Public Use
  Company Number: CIO14084221

PATIENT
  Sex: Female

DRUGS (1)
  1. NYQUIL, VERSION/FLAVOR UNKNOWN(ETHANOL 10-25 %, DEXTROMETHORPHAN HYDROBROMIDE 15-30 MG, DOXYLAMINE SUCCINATE 7.5-12.5 MG, PARACETAMOL UNKNOWN UNK, PSEUDOEPHEDRINE HYDROCHLORIDE UNKNOWN UNK) ORAL LIQUID, 30ML [Suspect]
     Active Substance: ACETAMINOPHEN\DEXTROMETHORPHAN HYDROBROMIDE\DOXYLAMINE SUCCINATE\PSEUDOEPHEDRINE HYDROCHLORIDE
     Route: 048

REACTIONS (3)
  - Diabetic coma [None]
  - Blood glucose decreased [None]
  - Blood glucose increased [None]
